FAERS Safety Report 14998731 (Version 1)
Quarter: 2018Q2

REPORT INFORMATION
  Report Type: Report from Study
  Country: DE (occurrence: DE)
  Receive Date: 20180612
  Receipt Date: 20180612
  Transmission Date: 20180711
  Serious: Yes (Other)
  Sender: FDA-Public Use
  Company Number: DE-MERCK KGAA-2049268

PATIENT
  Sex: Male
  Weight: 4 kg

DRUGS (6)
  1. IBUPROFEN. [Suspect]
     Active Substance: IBUPROFEN
  2. PARACETAMOL [Suspect]
     Active Substance: ACETAMINOPHEN
  3. OMEPRAZOLE. [Suspect]
     Active Substance: OMEPRAZOLE
  4. DICLOFENAC [Suspect]
     Active Substance: DICLOFENAC
  5. NOVOTHYROX [Suspect]
     Active Substance: LEVOTHYROXINE SODIUM
     Indication: PRODUCT USED FOR UNKNOWN INDICATION
  6. LYNESTRENOL [Suspect]
     Active Substance: LYNESTRENOL

REACTIONS (3)
  - Cerebral atrophy [Unknown]
  - Macrocephaly [Unknown]
  - Maternal exposure during pregnancy [Recovered/Resolved]
